FAERS Safety Report 7797288-6 (Version None)
Quarter: 2011Q4

REPORT INFORMATION
  Report Type: 
  Country: None (occurrence: None)
  Receive Date: 20111005
  Receipt Date: 20111004
  Transmission Date: 20120403
  Serious: Yes (Hospitalization)
  Sender: FDA-Public Use
  Company Number: PHEH2011US05899

PATIENT
  Sex: Male
  Weight: 36 kg

DRUGS (1)
  1. EXJADE [Suspect]
     Indication: SICKLE CELL ANAEMIA
     Dosage: 750 MG, DAILY
     Route: 048
     Dates: start: 20110322, end: 20110601

REACTIONS (1)
  - ACUTE CHEST SYNDROME [None]
